FAERS Safety Report 6879574-7 (Version None)
Quarter: 2010Q3

REPORT INFORMATION
  Report Type: 
  Country: None (occurrence: None)
  Receive Date: 20100728
  Receipt Date: 20100721
  Transmission Date: 20110219
  Serious: Yes (Other)
  Sender: FDA-Public Use
  Company Number: JP-PFIZER INC-2010090848

PATIENT
  Sex: Male

DRUGS (2)
  1. SOLU-CORTEF [Suspect]
     Indication: BRONCHOPULMONARY DYSPLASIA
     Dosage: 2 MG/KG, 1X/DAY
  2. SOLU-CORTEF [Suspect]
     Indication: CARDIOVASCULAR DISORDER

REACTIONS (1)
  - URINARY TRACT INFECTION [None]
